FAERS Safety Report 20952892 (Version 1)
Quarter: 2022Q2

REPORT INFORMATION
  Report Type: Report from Study
  Country: HR (occurrence: HR)
  Receive Date: 20220613
  Receipt Date: 20220613
  Transmission Date: 20220721
  Serious: Yes (Other)
  Sender: FDA-Public Use
  Company Number: HR-TEVA-2022-HR-2045145

PATIENT
  Age: 40 Year
  Sex: Male

DRUGS (2)
  1. COPAXONE [Suspect]
     Active Substance: GLATIRAMER ACETATE
     Indication: Multiple sclerosis
     Route: 065
     Dates: start: 20150125
  2. PAROXETINE [Concomitant]
     Active Substance: PAROXETINE
     Dosage: 20 MILLIGRAM DAILY;
     Dates: start: 202112

REACTIONS (5)
  - Loss of consciousness [Unknown]
  - Hypertension [Unknown]
  - Palpitations [Unknown]
  - Hypoaesthesia oral [Unknown]
  - Immediate post-injection reaction [Recovered/Resolved]

NARRATIVE: CASE EVENT DATE: 20220511
